FAERS Safety Report 6342730-0 (Version None)
Quarter: 2009Q3

REPORT INFORMATION
  Report Type: 
  Country: None (occurrence: None)
  Receive Date: 20090908
  Receipt Date: 20090904
  Transmission Date: 20100115
  Serious: Yes (Life-Threatening)
  Sender: FDA-Public Use
  Company Number: IT-JNJFOC-20090900842

PATIENT
  Sex: Female

DRUGS (3)
  1. SERENASE [Suspect]
     Indication: SUICIDE ATTEMPT
     Route: 065
  2. ANAFRANIL [Suspect]
     Indication: SUICIDE ATTEMPT
     Route: 048
  3. FERRO GRAD [Concomitant]
     Route: 065

REACTIONS (4)
  - DRUG ABUSE [None]
  - DRUG TOXICITY [None]
  - LOSS OF CONSCIOUSNESS [None]
  - SUICIDE ATTEMPT [None]
